FAERS Safety Report 12408949 (Version 2)
Quarter: 2016Q4

REPORT INFORMATION
  Report Type: Report from Study
  Country: US (occurrence: US)
  Receive Date: 20160526
  Receipt Date: 20161116
  Transmission Date: 20170207
  Serious: No
  Sender: FDA-Public Use
  Company Number: US-GLAXOSMITHKLINE-US2016067059

PATIENT
  Sex: Female

DRUGS (1)
  1. BELIMUMAB POWDER FOR INFUSION [Suspect]
     Active Substance: BELIMUMAB
     Indication: RHEUMATOID ARTHRITIS
     Dosage: UNK, U
     Route: 065
     Dates: end: 201602

REACTIONS (2)
  - Product use issue [Unknown]
  - Exposure during pregnancy [Unknown]
